FAERS Safety Report 9742282 (Version 7)
Quarter: 2015Q1

REPORT INFORMATION
  Report Type: Report from Study
  Country: DE (occurrence: DE)
  Receive Date: 20131210
  Receipt Date: 20150225
  Transmission Date: 20150721
  Serious: Yes (Hospitalization)
  Sender: FDA-Public Use
  Company Number: DE-ROCHE-1314200

PATIENT
  Age: 56 Year
  Sex: Male
  Weight: 57 kg

DRUGS (22)
  1. RITUXIMAB [Suspect]
     Active Substance: RITUXIMAB
     Indication: B-CELL LYMPHOMA
     Dosage: DATE OF LAST DOSE PRIOR TO SAE ON 21/NOV/2013.
     Route: 042
     Dates: start: 20130829
  2. PRED [Concomitant]
     Active Substance: PREDNISONE
     Dosage: AS NEEDED
     Route: 048
     Dates: start: 20130822, end: 20130827
  3. METAMIZOLE SODIUM [Concomitant]
     Active Substance: METAMIZOLE SODIUM
     Indication: DERMATITIS ALLERGIC
  4. METAMIZOLE SODIUM [Concomitant]
     Active Substance: METAMIZOLE SODIUM
     Indication: MUCOSAL INFLAMMATION
     Dosage: DROP.
     Route: 048
     Dates: start: 20131202
  5. RITUXIMAB [Suspect]
     Active Substance: RITUXIMAB
     Indication: B-CELL LYMPHOMA
     Route: 058
  6. BENDAMUSTINE [Suspect]
     Active Substance: BENDAMUSTINE
     Indication: B-CELL LYMPHOMA
     Dosage: DATE OF LAST DOSE PRIOR TO SAE WAS ON 22/NOV/2013
     Route: 042
     Dates: start: 20131121
  7. SIMVASTATIN. [Concomitant]
     Active Substance: SIMVASTATIN
     Indication: HYPERCHOLESTEROLAEMIA
     Route: 048
     Dates: start: 20130829
  8. AMPHO MORONAL [Concomitant]
     Dosage: 100 MG/ML AS NEEDED
     Route: 048
     Dates: start: 20130822, end: 20130901
  9. PCM (GERMANY) [Concomitant]
     Route: 048
     Dates: start: 20130829, end: 20130829
  10. ASPIRIN. [Concomitant]
     Active Substance: ASPIRIN
     Route: 048
     Dates: start: 20130831
  11. ALLOPURINOL. [Concomitant]
     Active Substance: ALLOPURINOL
     Indication: PROPHYLACTIC CHEMOTHERAPY
     Route: 048
     Dates: start: 20130829
  12. KALINOR RETARD [Concomitant]
     Active Substance: POTASSIUM CHLORIDE
     Indication: BLOOD POTASSIUM DECREASED
     Route: 048
     Dates: start: 20130828
  13. CIPROFLOXACIN. [Concomitant]
     Active Substance: CIPROFLOXACIN
     Indication: NASOPHARYNGITIS
     Dosage: 1 TABLET
     Route: 048
     Dates: start: 20131023
  14. BELOC-ZOK MITE [Concomitant]
     Active Substance: METOPROLOL SUCCINATE
     Indication: HYPERTENSION
     Route: 048
     Dates: start: 20130829
  15. GRANISETRON [Concomitant]
     Active Substance: GRANISETRON
     Indication: NAUSEA
     Dosage: 1 MG/ML AS REQUIRED
     Route: 042
     Dates: start: 20130830, end: 20130831
  16. CALCIUM CARBONATE. [Concomitant]
     Active Substance: CALCIUM CARBONATE
     Route: 048
     Dates: start: 20130825, end: 20130830
  17. METAMIZOLE SODIUM [Concomitant]
     Active Substance: METAMIZOLE SODIUM
     Indication: PAIN
     Dosage: DROPS AS NEEDED
     Route: 048
     Dates: start: 20130822
  18. PANTOPRAZOLE [Concomitant]
     Active Substance: PANTOPRAZOLE SODIUM
     Indication: PROPHYLAXIS
     Route: 048
     Dates: start: 20130829
  19. BROTIZOLAM [Concomitant]
     Active Substance: BROTIZOLAM
     Indication: SLEEP DISORDER
     Dosage: AS NEEDED
     Route: 048
     Dates: start: 20130830, end: 20130831
  20. DEXAMETASON [Concomitant]
     Active Substance: DEXAMETHASONE
     Indication: VOMITING
     Route: 048
     Dates: start: 20130830, end: 20130902
  21. TRANXILIUM [Concomitant]
     Active Substance: CLORAZEPATE DIPOTASSIUM
     Indication: SLEEP DISORDER
     Dosage: AS NEEDED
     Route: 042
     Dates: start: 20130828, end: 20130828
  22. ENOXAPARIN NATRIUM [Concomitant]
     Indication: THROMBOSIS
     Dosage: 10000 IE/ML
     Route: 030
     Dates: start: 20130831, end: 20130831

REACTIONS (3)
  - Stevens-Johnson syndrome [Not Recovered/Not Resolved]
  - Hyperglycaemia [Recovered/Resolved with Sequelae]
  - Diarrhoea [Recovered/Resolved]

NARRATIVE: CASE EVENT DATE: 20131201
